FAERS Safety Report 9672114 (Version 1)
Quarter: 2013Q4

REPORT INFORMATION
  Report Type: Spontaneous
  Country: GB (occurrence: GB)
  Receive Date: 20131106
  Receipt Date: 20131106
  Transmission Date: 20140711
  Serious: Yes (Other)
  Sender: FDA-Public Use
  Company Number: GB-TEVA-441194ISR

PATIENT
  Age: 45 Year
  Sex: Female
  Weight: 79.82 kg

DRUGS (1)
  1. RAMIPRIL [Suspect]
     Indication: HYPERTENSION
     Route: 048
     Dates: start: 20130920

REACTIONS (3)
  - Memory impairment [Not Recovered/Not Resolved]
  - Loss of libido [Not Recovered/Not Resolved]
  - Headache [Not Recovered/Not Resolved]
